FAERS Safety Report 4939420-5 (Version None)
Quarter: 2006Q1

REPORT INFORMATION
  Report Type: 
  Country: None (occurrence: None)
  Receive Date: 20060310
  Receipt Date: 20060303
  Transmission Date: 20060701
  Serious: Yes (Hospitalization)
  Sender: FDA-Public Use
  Company Number: ES-SOLVAY-00206000752

PATIENT
  Age: 35 Year
  Sex: Female

DRUGS (3)
  1. PROGESTAN [Suspect]
     Indication: ILL-DEFINED DISORDER
     Dosage: DAILY DOSE:  UNKNOWN
     Route: 048
     Dates: start: 20000201, end: 20030101
  2. PUREGON [Suspect]
     Indication: ILL-DEFINED DISORDER
     Dosage: DAILY DOSE:  UNKNOWN
     Route: 065
     Dates: start: 20000101, end: 20020101
  3. CHORIONIC GONADOTROPIN [Suspect]
     Indication: ILL-DEFINED DISORDER
     Dosage: DAILY DOSE:  UNKNOWN
     Route: 065
     Dates: start: 20000101, end: 20020101

REACTIONS (3)
  - RETINAL DISORDER [None]
  - RETINITIS PIGMENTOSA [None]
  - VISUAL DISTURBANCE [None]
